FAERS Safety Report 25051414 (Version 3)
Quarter: 2025Q2

REPORT INFORMATION
  Report Type: Report from Study
  Country: US (occurrence: US)
  Receive Date: 20250307
  Receipt Date: 20250423
  Transmission Date: 20250717
  Serious: No
  Sender: ACADIA PHARMACEUTICALS
  Company Number: US-ACADIA PHARMACEUTICALS INC.-ACA-2025-TRF-002120

PATIENT

DRUGS (10)
  1. DAYBUE [Suspect]
     Active Substance: TROFINETIDE
     Indication: Rett syndrome
     Dosage: 50 MILLILITER, BID
     Dates: start: 202307
  2. DIAZEPAM [Concomitant]
     Active Substance: DIAZEPAM
     Route: 054
  3. ESOMEPRAZOLE MAGNESIUM [Concomitant]
     Active Substance: ESOMEPRAZOLE MAGNESIUM
  4. FELBAMATE [Concomitant]
     Active Substance: FELBAMATE
     Dosage: 600 MG/5 ML, 7 MILLILITER, BID
  5. FLUVOXAMINE [Concomitant]
     Active Substance: FLUVOXAMINE
     Dosage: 100 MILLIGRAM, BID (CRUSH AND GIVE 1 VIA G-TUBE 2 TIMES A DAY.)
  6. MIRTAZAPINE [Concomitant]
     Active Substance: MIRTAZAPINE
     Dosage: 30 MILLIGRAM, QD, BEFORE BEDTIME
  7. NORETHINDRONE ACETATE [Concomitant]
     Active Substance: NORETHINDRONE ACETATE
     Dosage: 2.5 MILLIGRAM, QD, AT BEDTIME
  8. NUTREN JUNIOR FIBER [Concomitant]
     Route: 048
  9. QUETIAPINE [Concomitant]
     Active Substance: QUETIAPINE
     Dosage: 50 MILLIGRAM, QD, CRUSH 1 TABLET AND GIVE VIA G-TUBE EVERY NIGHT AT BEDTIME.
  10. TRAZODONE [Concomitant]
     Active Substance: TRAZODONE HYDROCHLORIDE
     Dosage: 75 MILLIGRAM, QD, TAKE 1.5 TABLET BY G TUBE EVERY DAY AT BEDTIME

REACTIONS (4)
  - Upper respiratory tract infection [Unknown]
  - Cough [Recovering/Resolving]
  - Nasal congestion [Recovering/Resolving]
  - Decreased appetite [Recovering/Resolving]

NARRATIVE: CASE EVENT DATE: 20250213
